FAERS Safety Report 10945763 (Version 1)
Quarter: 2015Q1

REPORT INFORMATION
  Report Type: Spontaneous
  Country: US (occurrence: US)
  Receive Date: 20150323
  Receipt Date: 20150323
  Transmission Date: 20150721
  Serious: No
  Sender: FDA-Public Use
  Company Number: US-ASTRAZENECA-2015SE23541

PATIENT
  Age: 718 Month
  Sex: Female
  Weight: 76.2 kg

DRUGS (5)
  1. BYETTA [Suspect]
     Active Substance: EXENATIDE
     Indication: TYPE 2 DIABETES MELLITUS
     Dosage: STARTED ON 5MCG, BUT MOST OF TREATMENT ON 10MCG PEN
     Route: 058
  2. VICTOZA [Concomitant]
     Active Substance: LIRAGLUTIDE
  3. TRULICITY [Suspect]
     Active Substance: DULAGLUTIDE
  4. GLIPIZIDE. [Concomitant]
     Active Substance: GLIPIZIDE
  5. BYETTA [Suspect]
     Active Substance: EXENATIDE
     Indication: TYPE 2 DIABETES MELLITUS
     Route: 058
     Dates: start: 201301

REACTIONS (4)
  - Pruritus [Unknown]
  - Erythema [Unknown]
  - Urticaria [Unknown]
  - Weight decreased [Unknown]

NARRATIVE: CASE EVENT DATE: 201301
